FAERS Safety Report 17152390 (Version 1)
Quarter: 2019Q4

REPORT INFORMATION
  Report Type: Spontaneous
  Country: ES (occurrence: ES)
  Receive Date: 20191213
  Receipt Date: 20191213
  Transmission Date: 20200122
  Serious: Yes (Life-Threatening, Hospitalization)
  Sender: FDA-Public Use
  Company Number: ES-MYLANLABS-2019M1122456

PATIENT
  Age: 18 Year
  Sex: Male

DRUGS (6)
  1. CITARABINA [Interacting]
     Active Substance: CYTARABINE
     Indication: MYELOID LEUKAEMIA
     Dosage: UNK
     Route: 042
     Dates: start: 20190125, end: 20190629
  2. FLUDARABINA                        /01004601/ [Interacting]
     Active Substance: FLUDARABINE PHOSPHATE
     Indication: MYELOID LEUKAEMIA
     Dosage: UNK
     Route: 042
     Dates: start: 20190125, end: 20190629
  3. METOTREXATO                        /00113801/ [Interacting]
     Active Substance: METHOTREXATE
     Indication: ACUTE MYELOID LEUKAEMIA
     Dosage: UNK
     Route: 037
     Dates: start: 20190125, end: 20190629
  4. ETOPOSIDE. [Suspect]
     Active Substance: ETOPOSIDE
     Indication: MYELOID LEUKAEMIA
     Dosage: UNK
     Route: 042
     Dates: start: 20190125, end: 20190629
  5. DAUNORUBICINA /00128201/ [Interacting]
     Active Substance: DAUNORUBICIN
     Indication: MYELOID LEUKAEMIA
     Dosage: UNK
     Route: 042
     Dates: start: 20190125, end: 20190629
  6. MITOXANTRONA /00661301/ [Interacting]
     Active Substance: MITOXANTRONE HYDROCHLORIDE
     Indication: MYELOID LEUKAEMIA
     Dosage: UNK
     Route: 042
     Dates: start: 20190125, end: 20190629

REACTIONS (2)
  - Septic shock [Recovered/Resolved]
  - Drug interaction [Unknown]

NARRATIVE: CASE EVENT DATE: 20190705
